FAERS Safety Report 6423444-5 (Version None)
Quarter: 2009Q4

REPORT INFORMATION
  Report Type: 
  Country: None (occurrence: None)
  Receive Date: 20091102
  Receipt Date: 20091022
  Transmission Date: 20100525
  Serious: Yes (Hospitalization)
  Sender: FDA-Public Use
  Company Number: B0596202A

PATIENT
  Sex: Female
  Weight: 51 kg

DRUGS (1)
  1. ARIXTRA [Suspect]
     Indication: THROMBOSIS PROPHYLAXIS
     Dosage: 2.5MG PER DAY
     Route: 058
     Dates: start: 20090913

REACTIONS (6)
  - ABDOMINAL SYMPTOM [None]
  - HAEMOGLOBIN DECREASED [None]
  - HAEMORRHAGE SUBCUTANEOUS [None]
  - HYPERTHERMIA [None]
  - POST PROCEDURAL HAEMATOMA [None]
  - WOUND DEHISCENCE [None]
